FAERS Safety Report 25526756 (Version 2)
Quarter: 2025Q3

REPORT INFORMATION
  Report Type: Spontaneous
  Country: MX (occurrence: MX)
  Receive Date: 20250707
  Receipt Date: 20250715
  Transmission Date: 20251021
  Serious: Yes (Disabling, Other)
  Sender: GILEAD
  Company Number: MX-GILEAD-2025-0719646

PATIENT
  Age: 45 Year
  Sex: Female

DRUGS (1)
  1. TRODELVY [Suspect]
     Active Substance: SACITUZUMAB GOVITECAN-HZIY
     Indication: Triple negative breast cancer
     Route: 065

REACTIONS (2)
  - Disease progression [Unknown]
  - Rash [Unknown]

NARRATIVE: CASE EVENT DATE: 20250504
